FAERS Safety Report 7930475-2 (Version None)
Quarter: 2011Q4

REPORT INFORMATION
  Report Type: 
  Country: None (occurrence: None)
  Receive Date: 20111121
  Receipt Date: 20111107
  Transmission Date: 20120403
  Serious: Yes (Hospitalization)
  Sender: FDA-Public Use
  Company Number: US-ROCHE-1012294

PATIENT
  Sex: Female

DRUGS (3)
  1. TARCEVA [Suspect]
     Indication: NEOPLASM
     Dosage: STARTS ON DAY 3
     Route: 048
     Dates: end: 20060801
  2. HERCEPTIN [Suspect]
     Indication: NEOPLASM
     Dosage: 30 MIN AFTER PACLITAXEL INFUSION ON DAY 1,8,15 AND 22
     Route: 042
     Dates: start: 20060612, end: 20060801
  3. PACLITAXEL [Suspect]
     Indication: NEOPLASM
     Dosage: OVER 1 HOUR ON DAY 1,8,15 AND 22 OF EACH CYCLE
     Route: 042
     Dates: start: 20060612, end: 20060801

REACTIONS (4)
  - CONVULSION [None]
  - NEOPLASM PROGRESSION [None]
  - INSOMNIA [None]
  - GRAND MAL CONVULSION [None]
